FAERS Safety Report 5192410-2 (Version None)
Quarter: 2006Q4

REPORT INFORMATION
  Report Type: 
  Country: None (occurrence: None)
  Receive Date: 20061227
  Receipt Date: 20061208
  Transmission Date: 20070319
  Serious: Yes (Other)
  Sender: FDA-Public Use
  Company Number: BR-PFIZER INC-2006152429

PATIENT
  Age: 23 Year
  Sex: Female

DRUGS (1)
  1. MISOPROSTOL [Suspect]
     Indication: ABORTION
     Route: 048

REACTIONS (3)
  - DRUG EXPOSURE DURING PREGNANCY [None]
  - DRUG INEFFECTIVE [None]
  - PREMATURE SEPARATION OF PLACENTA [None]
